FAERS Safety Report 9456770 (Version 2)
Quarter: 2014Q2

REPORT INFORMATION
  Report Type: Spontaneous
  Country: SE (occurrence: SE)
  Receive Date: 20130813
  Receipt Date: 20140516
  Transmission Date: 20141212
  Serious: Yes (Other)
  Sender: FDA-Public Use
  Company Number: SE-WATSON-2013-14244

PATIENT
  Age: 74 Year
  Sex: Male

DRUGS (1)
  1. METFORMIN HYDROCHLORIDE (UNKNOWN) [Suspect]
     Indication: DIABETES MELLITUS
     Dosage: UNK, UNKNOWN
     Route: 065
     Dates: start: 20120629

REACTIONS (9)
  - Depressive symptom [Unknown]
  - Mood altered [Unknown]
  - Feeling of despair [Unknown]
  - Dizziness [Unknown]
  - Nightmare [Unknown]
  - Anxiety [Unknown]
  - Disturbance in attention [Unknown]
  - Libido decreased [Unknown]
  - Visual impairment [Unknown]
